FAERS Safety Report 9038497 (Version 1)
Quarter: 2013Q1

REPORT INFORMATION
  Report Type: Spontaneous
  Country: SE (occurrence: SE)
  Receive Date: 20130129
  Receipt Date: 20130129
  Transmission Date: 20140127
  Serious: Yes (Other)
  Sender: FDA-Public Use
  Company Number: SE-ABBOTT-13P-150-1041396-00

PATIENT
  Sex: 0

DRUGS (2)
  1. DIVALPROEX SODIUM [Suspect]
     Indication: PRODUCT USED FOR UNKNOWN INDICATION
  2. OLANZAPINE [Suspect]

REACTIONS (2)
  - Rhabdomyolysis [Unknown]
  - Neuroleptic malignant syndrome [Unknown]
